FAERS Safety Report 4555325-6 (Version None)
Quarter: 2005Q1

REPORT INFORMATION
  Report Type: 
  Country: None (occurrence: None)
  Receive Date: 20041228
  Receipt Date: 20041012
  Transmission Date: 20050727
  Serious: Yes (Hospitalization)
  Sender: FDA-Public Use
  Company Number: 002911

PATIENT
  Age: 26 Year
  Sex: Female
  Weight: 70.3 kg

DRUGS (2)
  1. SEASONALE [Suspect]
     Indication: ENDOMETRIOSIS
     Dosage: 1.00 TABLET, QD, ORAL
     Route: 048
     Dates: start: 20041004, end: 20041012
  2. EFFEXOR [Concomitant]

REACTIONS (5)
  - CHROMATURIA [None]
  - GALLBLADDER DISORDER [None]
  - HEPATIC FUNCTION ABNORMAL [None]
  - JAUNDICE CHOLESTATIC [None]
  - NAUSEA [None]
